FAERS Safety Report 4798236-3 (Version None)
Quarter: 2005Q4

REPORT INFORMATION
  Report Type: 
  Country: None (occurrence: None)
  Receive Date: 20051014
  Receipt Date: 20050824
  Transmission Date: 20060501
  Serious: Yes (Life-Threatening, Hospitalization)
  Sender: FDA-Public Use
  Company Number: PHEH2005US09476

PATIENT
  Age: 55 Year
  Sex: Female
  Weight: 118 kg

DRUGS (4)
  1. LOTREL [Suspect]
     Indication: HYPERTENSION
     Dosage: 10/20MG, QD
     Route: 048
     Dates: start: 20050323, end: 20050413
  2. GLUCOVANCE [Concomitant]
     Indication: DIABETES MELLITUS
  3. METFORMIN [Concomitant]
     Indication: DIABETES MELLITUS NON-INSULIN-DEPENDENT
     Dosage: 500 MG, BID
     Route: 048
     Dates: start: 20050323
  4. NEXIUM [Concomitant]
     Indication: REFLUX OESOPHAGITIS
     Dosage: 40 MG, QD
     Route: 048
     Dates: start: 20050323

REACTIONS (10)
  - CATHETERISATION CARDIAC [None]
  - CHEST PAIN [None]
  - DIAGNOSTIC PROCEDURE [None]
  - DIARRHOEA [None]
  - DYSPNOEA [None]
  - PHARYNGEAL OEDEMA [None]
  - PRURITUS [None]
  - STOMACH DISCOMFORT [None]
  - TACHYCARDIA [None]
  - URTICARIA [None]
